FAERS Safety Report 7599738-7 (Version None)
Quarter: 2011Q2

REPORT INFORMATION
  Report Type: 
  Country: None (occurrence: None)
  Receive Date: 20110629
  Receipt Date: 20110614
  Transmission Date: 20111010
  Serious: Yes (Life-Threatening)
  Sender: FDA-Public Use
  Company Number: TCI2011A03530

PATIENT
  Sex: Female

DRUGS (8)
  1. BASEN (VOGLIBOSE) [Concomitant]
  2. ACTOS [Suspect]
     Indication: DIABETES MELLITUS
     Dosage: 15 MG (15 MG, 1 D) PER ORAL
     Route: 048
     Dates: start: 20051210, end: 20100109
  3. DEPAS (ETIZOLAM) [Concomitant]
  4. AMARYL [Concomitant]
  5. ZYRTEC [Concomitant]
  6. TAGAMET [Concomitant]
  7. ADALAT [Concomitant]
  8. OLMESARTAN MEDOXOMIL [Concomitant]

REACTIONS (1)
  - BLADDER CANCER [None]
